FAERS Safety Report 19776581 (Version 4)
Quarter: 2021Q3

REPORT INFORMATION
  Report Type: Report from Study
  Country: None (occurrence: US)
  Receive Date: 20210902
  Receipt Date: 20210930
  Transmission Date: 20211014
  Serious: Yes (Other)
  Sender: FDA-Public Use
  Company Number: US-ABBVIE-21K-163-4026409-00

PATIENT
  Age: 62 Year
  Sex: Male
  Weight: 74.91 kg

DRUGS (3)
  1. HUMIRA [Suspect]
     Active Substance: ADALIMUMAB
     Indication: CROHN^S DISEASE
     Dosage: DAY 1
     Route: 058
     Dates: start: 20210716, end: 20210716
  2. HUMIRA [Suspect]
     Active Substance: ADALIMUMAB
     Indication: CROHN^S DISEASE
     Dosage: DAY 29, CITRATE FREE
     Route: 058
     Dates: start: 20210813
  3. HUMIRA [Suspect]
     Active Substance: ADALIMUMAB
     Dosage: DAY 15
     Route: 058
     Dates: start: 20210730, end: 20210730

REACTIONS (15)
  - Colitis [Unknown]
  - Gastrointestinal sounds abnormal [Unknown]
  - Anxiety [Unknown]
  - Insomnia [Unknown]
  - Terminal state [Unknown]
  - Asthenia [Unknown]
  - Mental impairment [Unknown]
  - Post procedural haemorrhage [Recovered/Resolved]
  - Lethargy [Unknown]
  - Rheumatoid arthritis [Unknown]
  - Diarrhoea [Unknown]
  - Frequent bowel movements [Unknown]
  - Night sweats [Unknown]
  - Large intestine polyp [Recovered/Resolved]
  - Depressed mood [Unknown]

NARRATIVE: CASE EVENT DATE: 2021
